FAERS Safety Report 17583286 (Version 1)
Quarter: 2020Q1

REPORT INFORMATION
  Report Type: Spontaneous
  Country: US (occurrence: US)
  Receive Date: 20200326
  Receipt Date: 20200326
  Transmission Date: 20200409
  Serious: No
  Sender: FDA-Public Use
  Company Number: US-ACCORD-133495

PATIENT
  Age: 72 Year
  Sex: Male

DRUGS (1)
  1. CARBIDOPA-LEVODOPA ACCORD [Suspect]
     Active Substance: CARBIDOPA\LEVODOPA
     Indication: PARKINSON^S DISEASE
     Dosage: STRENGTH: 50/200 MG?THREE TIMES A DAY?STARTED A YEAR AGO
     Route: 048

REACTIONS (2)
  - Fall [Unknown]
  - Pruritus [Not Recovered/Not Resolved]
